FAERS Safety Report 5354069-0 (Version None)
Quarter: 2007Q2

REPORT INFORMATION
  Report Type: 
  Country: None (occurrence: None)
  Receive Date: 20070612
  Receipt Date: 20070605
  Transmission Date: 20071010
  Serious: Yes (Death)
  Sender: FDA-Public Use
  Company Number: A0654904A

PATIENT
  Age: 27 Year
  Sex: Female

DRUGS (1)
  1. VALTREX [Suspect]

REACTIONS (2)
  - DEATH [None]
  - DEPRESSED LEVEL OF CONSCIOUSNESS [None]
